FAERS Safety Report 19513988 (Version 1)
Quarter: 2021Q3

REPORT INFORMATION
  Report Type: Spontaneous
  Country: US (occurrence: US)
  Receive Date: 20210709
  Receipt Date: 20210709
  Transmission Date: 20211014
  Serious: No
  Sender: FDA-Public Use
  Company Number: US-AVEO ONCOLOGY-2021-AVEO-US003363

PATIENT

DRUGS (14)
  1. LEVOTHYROXINE SODIUM STAT RX [Concomitant]
     Active Substance: LEVOTHYROXINE SODIUM
  2. HYDRALAZINE [Concomitant]
     Active Substance: HYDRALAZINE HYDROCHLORIDE
  3. CARDURA CR [Concomitant]
     Active Substance: DOXAZOSIN MESYLATE
  4. MIRTAZAPINE. [Concomitant]
     Active Substance: MIRTAZAPINE
  5. MYCOPHENOLATE MOFETIL. [Concomitant]
     Active Substance: MYCOPHENOLATE MOFETIL
  6. FOTIVDA [Suspect]
     Active Substance: TIVOZANIB HYDROCHLORIDE
     Indication: RENAL CANCER
     Dosage: 1.34 MG, DAILY
     Route: 048
  7. CLONAZEPAM. [Concomitant]
     Active Substance: CLONAZEPAM
  8. PREDNISONE. [Concomitant]
     Active Substance: PREDNISONE
  9. SODIUM BICARBONATE. [Concomitant]
     Active Substance: SODIUM BICARBONATE
  10. ZOCOR [Concomitant]
     Active Substance: SIMVASTATIN
  11. TRULICITY [Concomitant]
     Active Substance: DULAGLUTIDE
  12. ULORIC [Concomitant]
     Active Substance: FEBUXOSTAT
  13. CARDIZEM [Concomitant]
     Active Substance: DILTIAZEM HYDROCHLORIDE
  14. FINASTERIDE. [Concomitant]
     Active Substance: FINASTERIDE

REACTIONS (4)
  - Diarrhoea [Unknown]
  - Nausea [Unknown]
  - Proteinuria [Unknown]
  - Abdominal discomfort [Unknown]
